FAERS Safety Report 14813770 (Version 2)
Quarter: 2018Q2

REPORT INFORMATION
  Report Type: Spontaneous
  Country: PR (occurrence: PR)
  Receive Date: 20180426
  Receipt Date: 20180430
  Transmission Date: 20180711
  Serious: No
  Sender: FDA-Public Use
  Company Number: PR-PFIZER INC-2017551465

PATIENT
  Age: 71 Year
  Sex: Female
  Weight: 73 kg

DRUGS (2)
  1. XELJANZ XR [Suspect]
     Active Substance: TOFACITINIB CITRATE
     Dosage: 11 MG, UNK
     Dates: end: 2017
  2. XELJANZ XR [Suspect]
     Active Substance: TOFACITINIB CITRATE
     Dosage: 11 MG, UNK

REACTIONS (2)
  - Pain [Unknown]
  - Malaise [Unknown]
